FAERS Safety Report 5595036-1 (Version None)
Quarter: 2008Q1

REPORT INFORMATION
  Report Type: 
  Country: None (occurrence: None)
  Receive Date: 20080117
  Receipt Date: 20080108
  Transmission Date: 20080703
  Serious: Yes (Other)
  Sender: FDA-Public Use
  Company Number: ES-AMGEN-UK259790

PATIENT
  Age: 57 Year
  Sex: Male

DRUGS (1)
  1. KEPIVANCE [Suspect]
     Indication: MUCOSAL INFLAMMATION
     Route: 042

REACTIONS (2)
  - RASH ERYTHEMATOUS [None]
  - RASH MACULAR [None]
